FAERS Safety Report 14027091 (Version 2)
Quarter: 2017Q4

REPORT INFORMATION
  Report Type: Report from Study
  Country: None (occurrence: CO)
  Receive Date: 20170929
  Receipt Date: 20171018
  Transmission Date: 20180321
  Serious: Yes (Other)
  Sender: FDA-Public Use
  Company Number: CO-ABBVIE-17S-036-2116273-00

PATIENT
  Age: 43 Year
  Sex: Female
  Weight: 50 kg

DRUGS (1)
  1. ZEMPLAR [Suspect]
     Active Substance: PARICALCITOL
     Indication: HYPERPARATHYROIDISM SECONDARY
     Dosage: POSTDYALISIS
     Route: 042
     Dates: start: 20130222, end: 20170620

REACTIONS (1)
  - Renal transplant [Recovering/Resolving]

NARRATIVE: CASE EVENT DATE: 20170827
